FAERS Safety Report 21916151 (Version 2)
Quarter: 2024Q1

REPORT INFORMATION
  Report Type: Spontaneous
  Country: GR (occurrence: GR)
  Receive Date: 20230126
  Receipt Date: 20240318
  Transmission Date: 20240410
  Serious: Yes (Other)
  Sender: FDA-Public Use
  Company Number: GR-MLMSERVICE-20220415-3504301-1

PATIENT
  Age: 57 Year
  Sex: Female

DRUGS (9)
  1. CISPLATIN [Suspect]
     Active Substance: CISPLATIN
     Indication: Angiosarcoma
     Dosage: 320MG/SQ. METER,CYCLICAL, EVERY 21DAYS, 80MG/M2,D1
     Route: 065
  2. CISPLATIN [Suspect]
     Active Substance: CISPLATIN
     Indication: Metastases to liver
     Dosage: 80 MILLIGRAM/SQ. METER, ~80 MG/M2, D1
     Route: 065
  3. CISPLATIN [Suspect]
     Active Substance: CISPLATIN
     Indication: Metastases to lung
  4. CISPLATIN [Suspect]
     Active Substance: CISPLATIN
     Indication: Metastases to bone
  5. CISPLATIN [Suspect]
     Active Substance: CISPLATIN
     Indication: Angiosarcoma
  6. VINORELBINE [Suspect]
     Active Substance: VINORELBINE TARTRATE
     Indication: Metastases to bone
     Dosage: 240MG/SQ.METER,CYCLICAL30MG/M2,EVERY21DAYS,D1+8
     Route: 048
  7. VINORELBINE [Suspect]
     Active Substance: VINORELBINE TARTRATE
     Indication: Angiosarcoma
     Dosage: 30 MILLIGRAM/SQ. METER
     Route: 048
  8. VINORELBINE [Suspect]
     Active Substance: VINORELBINE TARTRATE
     Indication: Metastases to liver
  9. VINORELBINE [Suspect]
     Active Substance: VINORELBINE TARTRATE
     Indication: Metastases to lung

REACTIONS (4)
  - Gastrointestinal toxicity [Recovered/Resolved]
  - Haematotoxicity [Recovered/Resolved]
  - Nephropathy toxic [Recovered/Resolved]
  - Off label use [Unknown]
